FAERS Safety Report 4707379-1 (Version None)
Quarter: 2005Q3

REPORT INFORMATION
  Report Type: 
  Country: None (occurrence: None)
  Receive Date: 20050706
  Receipt Date: 20050620
  Transmission Date: 20060218
  Serious: Yes (Hospitalization)
  Sender: FDA-Public Use
  Company Number: FR-MERCK-0507USA00360

PATIENT
  Age: 58 Year
  Sex: Male
  Weight: 115 kg

DRUGS (3)
  1. ZOCOR [Suspect]
     Route: 048
     Dates: start: 20041001, end: 20050527
  2. PREVISCAN [Suspect]
     Indication: THROMBOSIS
     Route: 048
     Dates: start: 20050328, end: 20050430
  3. STAGID [Suspect]
     Route: 048
     Dates: start: 20050101, end: 20050527

REACTIONS (4)
  - ANAEMIA [None]
  - LYMPHOPENIA [None]
  - PANCYTOPENIA [None]
  - THROMBOCYTOPENIA [None]
